FAERS Safety Report 14890240 (Version 1)
Quarter: 2018Q2

REPORT INFORMATION
  Report Type: Spontaneous
  Country: US (occurrence: US)
  Receive Date: 20180514
  Receipt Date: 20180514
  Transmission Date: 20180711
  Serious: No
  Sender: FDA-Public Use
  Company Number: US-PFIZER INC-2018189840

PATIENT
  Sex: Female

DRUGS (1)
  1. ADVIL [Suspect]
     Active Substance: IBUPROFEN
     Indication: ARTHRALGIA
     Dosage: UNK, (3 ADVIL AT ONCE )

REACTIONS (5)
  - Product coating issue [Unknown]
  - Extra dose administered [Unknown]
  - Product colour issue [Unknown]
  - Dysphagia [Unknown]
  - Product use complaint [Unknown]
